FAERS Safety Report 24538304 (Version 2)
Quarter: 2024Q4

REPORT INFORMATION
  Report Type: Spontaneous
  Country: US (occurrence: US)
  Receive Date: 20241023
  Receipt Date: 20241106
  Transmission Date: 20250114
  Serious: Yes (Life-Threatening, Hospitalization)
  Sender: TEVA
  Company Number: US-TEVA-VS-3255786

PATIENT
  Sex: Female

DRUGS (1)
  1. BACLOFEN [Suspect]
     Active Substance: BACLOFEN
     Indication: Product used for unknown indication
     Route: 048

REACTIONS (9)
  - Toxicity to various agents [Recovering/Resolving]
  - Intentional overdose [Unknown]
  - Hypokalaemia [Recovering/Resolving]
  - Respiratory distress [Recovering/Resolving]
  - Bradycardia [Recovering/Resolving]
  - Hypotension [Recovering/Resolving]
  - Stress cardiomyopathy [Recovering/Resolving]
  - Respiratory acidosis [Recovering/Resolving]
  - Hypertension [Recovering/Resolving]
